FAERS Safety Report 4488757-5 (Version None)
Quarter: 2004Q4

REPORT INFORMATION
  Report Type: 
  Country: None (occurrence: None)
  Receive Date: 20041025
  Receipt Date: 20041011
  Transmission Date: 20050328
  Serious: Yes (Death, Other)
  Sender: FDA-Public Use
  Company Number: 2004067547

PATIENT
  Age: 78 Year
  Sex: Male

DRUGS (5)
  1. DOXAZOSIN (DOXAZOSIN) [Suspect]
     Indication: BENIGN NEOPLASM OF PROSTATE
     Dosage: 2 MG ( 2 MG, 1 IN 1 D), ORAL
     Route: 048
     Dates: start: 20040811
  2. ALL OTHER THERAPEUTIC PRODUCTS (ALL OTHER THERAPEUTIC PRODUCTS) [Concomitant]
  3. FOSINOPRIL SODIUM [Concomitant]
  4. ISOSORBIDE DINITRATE [Concomitant]
  5. SERENOA REPENS (SERENOA REPENS) [Concomitant]

REACTIONS (5)
  - CARDIAC FAILURE ACUTE [None]
  - DIZZINESS [None]
  - ELECTROCARDIOGRAM ST SEGMENT ELEVATION [None]
  - HEADACHE [None]
  - MALAISE [None]
